FAERS Safety Report 24865159 (Version 1)
Quarter: 2025Q1

REPORT INFORMATION
  Report Type: Other
  Country: US (occurrence: US)
  Receive Date: 20250121
  Receipt Date: 20250121
  Transmission Date: 20250409
  Serious: Yes (Hospitalization, Other)
  Sender: ANI
  Company Number: US-ANIPHARMA-015380

PATIENT
  Sex: Female

DRUGS (10)
  1. CYCLOPHOSPHAMIDE [Suspect]
     Active Substance: CYCLOPHOSPHAMIDE
     Indication: Primitive neuroectodermal tumour
  2. VINCRISTINE [Concomitant]
     Active Substance: VINCRISTINE
     Indication: Primitive neuroectodermal tumour
  3. CISPLATIN [Concomitant]
     Active Substance: CISPLATIN
     Indication: Primitive neuroectodermal tumour
  4. ETOPOSIDE [Concomitant]
     Active Substance: ETOPOSIDE
     Indication: Primitive neuroectodermal tumour
  5. METHOTREXATE [Concomitant]
     Active Substance: METHOTREXATE
     Indication: Primitive neuroectodermal tumour
  6. CARBOPLATIN [Concomitant]
     Active Substance: CARBOPLATIN
     Indication: Primitive neuroectodermal tumour
  7. THIOTEPA [Concomitant]
     Active Substance: THIOTEPA
     Indication: Primitive neuroectodermal tumour
  8. TOPOTECAN [Concomitant]
     Active Substance: TOPOTECAN HYDROCHLORIDE
     Indication: Primitive neuroectodermal tumour
     Route: 037
  9. VORINOSTAT [Concomitant]
     Active Substance: VORINOSTAT
     Indication: Primitive neuroectodermal tumour
     Route: 048
  10. ISOTRETINOIN [Concomitant]
     Active Substance: ISOTRETINOIN
     Indication: Primitive neuroectodermal tumour

REACTIONS (6)
  - Respiratory arrest [Unknown]
  - Choking [Unknown]
  - Febrile neutropenia [Unknown]
  - Pseudomonal sepsis [Unknown]
  - Epistaxis [Unknown]
  - Mucosal inflammation [Unknown]
